FAERS Safety Report 9115794 (Version 1)
Quarter: 2013Q1

REPORT INFORMATION
  Report Type: Report from Study
  Country: DE (occurrence: DE)
  Receive Date: 20130224
  Receipt Date: 20130224
  Transmission Date: 20140127
  Serious: No
  Sender: FDA-Public Use
  Company Number: PHHY2012DE079099

PATIENT
  Sex: Male

DRUGS (6)
  1. AMN107 [Suspect]
     Indication: CHRONIC MYELOID LEUKAEMIA
     Dosage: 600 MG, DAILY
     Route: 048
     Dates: start: 20120117
  2. DECORTIN [Concomitant]
     Dosage: 25 OT,
     Dates: start: 20120707
  3. DEKRISTOL [Concomitant]
     Dosage: 20 OT, QW
     Dates: start: 20120707
  4. PANTOZOL [Concomitant]
     Dosage: 40 MG,
     Dates: start: 20120630
  5. SAW PALMETTO [Concomitant]
     Dosage: 320 MG,
     Dates: start: 20120630
  6. MIRTAZAPINE [Concomitant]
     Dosage: 15 MG,
     Dates: start: 20120630

REACTIONS (3)
  - Leukocytosis [Not Recovered/Not Resolved]
  - Alanine aminotransferase increased [Not Recovered/Not Resolved]
  - Blood lactate dehydrogenase increased [Not Recovered/Not Resolved]
